FAERS Safety Report 4879287-7 (Version None)
Quarter: 2006Q1

REPORT INFORMATION
  Report Type: 
  Country: None (occurrence: None)
  Receive Date: 20060112
  Receipt Date: 20050805
  Transmission Date: 20060701
  Serious: Yes (Hospitalization)
  Sender: FDA-Public Use
  Company Number: US-MERCK-0508USA01478

PATIENT
  Age: 78 Year
  Sex: Female
  Weight: 67 kg

DRUGS (17)
  1. VIOXX [Suspect]
     Indication: ARTHRITIS
     Route: 048
     Dates: start: 19991124, end: 20040901
  2. PREMARIN [Concomitant]
     Route: 065
  3. HYDROCHLOROTHIAZIDE [Concomitant]
     Route: 065
  4. PAXIL [Concomitant]
     Route: 065
  5. NASONEX [Concomitant]
     Route: 065
  6. ALBUTEROL [Concomitant]
     Route: 065
  7. TICLID [Concomitant]
     Route: 065
  8. DYAZIDE [Concomitant]
     Route: 065
  9. XANAX [Concomitant]
     Route: 065
  10. PROTONIX [Concomitant]
     Route: 065
  11. ACETAMINOPHEN [Concomitant]
     Route: 065
  12. PLAVIX [Concomitant]
     Route: 065
  13. TAMOXIFEN CITRATE [Concomitant]
     Route: 065
  14. LOVASTATIN [Concomitant]
     Route: 065
  15. ATENOLOL [Concomitant]
     Route: 065
  16. ASPIRIN [Concomitant]
     Route: 065
  17. [THERAPY UNSPECIFIED] [Concomitant]
     Route: 065

REACTIONS (3)
  - CORONARY ARTERY OCCLUSION [None]
  - HYPERTENSION [None]
  - MYOCARDIAL INFARCTION [None]
